FAERS Safety Report 16425809 (Version 1)
Quarter: 2019Q2

REPORT INFORMATION
  Report Type: Spontaneous
  Country: MY (occurrence: MY)
  Receive Date: 20190613
  Receipt Date: 20190613
  Transmission Date: 20190711
  Serious: Yes (Hospitalization, Disabling)
  Sender: FDA-Public Use
  Company Number: MY-ACELLA PHARMACEUTICALS, LLC-2068184

PATIENT
  Age: 20 Year
  Sex: Male

DRUGS (2)
  1. VALPROATE SODIUM. [Concomitant]
     Active Substance: VALPROATE SODIUM
     Route: 048
  2. PHENYTOIN SODIUM. [Suspect]
     Active Substance: PHENYTOIN SODIUM
     Indication: PARTIAL SEIZURES
     Route: 048

REACTIONS (5)
  - Aggression [Recovered/Resolved]
  - Confusional state [Recovered/Resolved]
  - Abdominal pain [Recovered/Resolved]
  - Nystagmus [Recovered/Resolved]
  - Blindness [Recovered/Resolved]
